FAERS Safety Report 23285556 (Version 1)
Quarter: 2023Q4

REPORT INFORMATION
  Report Type: Report from Study
  Country: CA (occurrence: CA)
  Receive Date: 20231212
  Receipt Date: 20231212
  Transmission Date: 20240109
  Serious: Yes (Hospitalization, Other)
  Sender: FDA-Public Use
  Company Number: CA-ABBVIE-5529400

PATIENT
  Sex: Male

DRUGS (1)
  1. SKYRIZI [Suspect]
     Active Substance: RISANKIZUMAB-RZAA
     Indication: Crohn^s disease
     Dosage: FREQUENCY TEXT: WEEK 0
     Route: 042
     Dates: start: 20231106

REACTIONS (3)
  - Gastrointestinal haemorrhage [Recovering/Resolving]
  - Ulcer [Unknown]
  - Diverticulitis [Unknown]

NARRATIVE: CASE EVENT DATE: 20230101
